FAERS Safety Report 5731540-0 (Version None)
Quarter: 2008Q2

REPORT INFORMATION
  Report Type: 
  Country: None (occurrence: None)
  Receive Date: 20080508
  Receipt Date: 20080429
  Transmission Date: 20081010
  Serious: Yes (Death, Other)
  Sender: FDA-Public Use
  Company Number: US-JNJFOC-20080407744

PATIENT
  Age: 34 Year
  Sex: Male

DRUGS (1)
  1. REMICADE [Suspect]
     Indication: CROHN'S DISEASE
     Route: 042

REACTIONS (6)
  - ABSCESS [None]
  - BETA HAEMOLYTIC STREPTOCOCCAL INFECTION [None]
  - CAT SCRATCH DISEASE [None]
  - DYSPHAGIA [None]
  - SQUAMOUS CELL CARCINOMA [None]
  - TONGUE NEOPLASM MALIGNANT STAGE UNSPECIFIED [None]
